FAERS Safety Report 9513462 (Version 1)
Quarter: 2013Q3

REPORT INFORMATION
  Report Type: Spontaneous
  Country: US (occurrence: US)
  Receive Date: 20130910
  Receipt Date: 20130910
  Transmission Date: 20140515
  Serious: No
  Sender: FDA-Public Use
  Company Number: US-TARO-2013P1003118

PATIENT
  Age: 68 Year
  Sex: Male
  Weight: 86.18 kg

DRUGS (4)
  1. WARFARIN SODIUM TABLETS USP 2.5MG [Suspect]
     Route: 048
     Dates: start: 20121021, end: 201301
  2. WARFARIN SODIUM TABLETS USP 2.5MG [Suspect]
     Route: 048
     Dates: start: 201301, end: 20130309
  3. WARFARIN SODIUM TABLETS USP 2.5MG [Suspect]
     Route: 048
     Dates: start: 20130314, end: 20130318
  4. XARELTO [Suspect]
     Dates: start: 20130319

REACTIONS (9)
  - Myalgia [Recovering/Resolving]
  - Arthralgia [Recovering/Resolving]
  - Mobility decreased [Recovering/Resolving]
  - International normalised ratio increased [Recovered/Resolved]
  - Haemorrhoids [Recovered/Resolved]
  - Red blood cell sedimentation rate increased [Unknown]
  - Inflammation [Unknown]
  - Precancerous mucosal lesion [Unknown]
  - Musculoskeletal stiffness [Unknown]
